FAERS Safety Report 21315275 (Version 1)
Quarter: 2022Q3

REPORT INFORMATION
  Report Type: Spontaneous
  Country: US (occurrence: None)
  Receive Date: 20220909
  Receipt Date: 20220909
  Transmission Date: 20221027
  Serious: No
  Sender: FDA-Public Use
  Company Number: US-ARIS GLOBAL-202111-2075

PATIENT
  Sex: Female

DRUGS (4)
  1. OXERVATE [Suspect]
     Active Substance: CENEGERMIN-BKBJ
     Indication: Neurotrophic keratopathy
     Route: 047
     Dates: start: 20211011
  2. PRED FORTE [Concomitant]
     Active Substance: PREDNISOLONE ACETATE
  3. TIMOLOL MALEATE [Concomitant]
     Active Substance: TIMOLOL MALEATE
  4. LATANOPROST [Concomitant]
     Active Substance: LATANOPROST

REACTIONS (5)
  - Eye pain [Unknown]
  - Headache [Unknown]
  - Eye irritation [Unknown]
  - Eyelid pain [Unknown]
  - Eyelid irritation [Unknown]
